FAERS Safety Report 6166402-0 (Version None)
Quarter: 2009Q2

REPORT INFORMATION
  Report Type: 
  Country: None (occurrence: None)
  Receive Date: 20090424
  Receipt Date: 20090420
  Transmission Date: 20091009
  Serious: Yes (Other)
  Sender: FDA-Public Use
  Company Number: US-BAYER-200911050BCC

PATIENT
  Age: 55 Year
  Sex: Female
  Weight: 46 kg

DRUGS (3)
  1. MIDOL [Suspect]
     Indication: PREMENSTRUAL SYNDROME
     Dosage: 1-2 TABLETS ^ON AND OFF^
     Route: 048
     Dates: start: 20071001, end: 20080301
  2. ALLEGRA [Concomitant]
  3. ALLERGY SHOTS [Concomitant]

REACTIONS (1)
  - RENAL FAILURE CHRONIC [None]
